FAERS Safety Report 9229895 (Version 1)
Quarter: 2013Q2

REPORT INFORMATION
  Report Type: Spontaneous
  Country: US (occurrence: US)
  Receive Date: 20130415
  Receipt Date: 20130415
  Transmission Date: 20140414
  Serious: No
  Sender: FDA-Public Use
  Company Number: US-009507513-1304USA005674

PATIENT
  Age: 22 Year
  Sex: Female

DRUGS (2)
  1. PEG-INTRON [Suspect]
     Indication: HEPATITIS C
     Dosage: UNK
     Dates: start: 20130403
  2. REBETOL [Suspect]
     Indication: HEPATITIS C
     Dosage: UNK
     Dates: start: 20130403

REACTIONS (5)
  - Pyrexia [Unknown]
  - Injection site reaction [Unknown]
  - Pruritus [Unknown]
  - Myalgia [Unknown]
  - Influenza like illness [Unknown]
